FAERS Safety Report 16888705 (Version 1)
Quarter: 2019Q4

REPORT INFORMATION
  Report Type: Spontaneous
  Country: GB (occurrence: GB)
  Receive Date: 20191007
  Receipt Date: 20191007
  Transmission Date: 20200122
  Serious: Yes (Other)
  Sender: FDA-Public Use
  Company Number: GB-DEXPHARM-20190851

PATIENT
  Age: 71 Year
  Sex: Male
  Weight: 64 kg

DRUGS (10)
  1. ALOGLIPTIN. [Concomitant]
     Active Substance: ALOGLIPTIN
     Dosage: AS ADVISED BY RENAL TEAM
     Dates: start: 20190402, end: 20190912
  2. GLYCEROL [Concomitant]
     Active Substance: GLYCERIN
     Dosage: AS NECESSARY
     Route: 054
     Dates: start: 20190830
  3. TAMSULOSIN HYDROCHLORIDE. [Concomitant]
     Active Substance: TAMSULOSIN HYDROCHLORIDE
     Dates: start: 20190402, end: 20190627
  4. OMEPRAZOLE. [Suspect]
     Active Substance: OMEPRAZOLE
     Indication: PRODUCT USED FOR UNKNOWN INDICATION
     Dates: start: 20190402, end: 20190912
  5. PREDNISOLONE. [Concomitant]
     Active Substance: PREDNISOLONE
     Dosage: AS ADVISED BY RENAL TEAM
     Dates: start: 20190910
  6. FERROUS GLUCONATE [Concomitant]
     Active Substance: FERROUS GLUCONATE
     Dates: start: 20190402
  7. GLICLAZIDE [Concomitant]
     Active Substance: GLICLAZIDE
     Dosage: AS ADVISED BY RENAL TEAM
     Dates: start: 20190402, end: 20190626
  8. HUNULIN M3 [Concomitant]
     Dosage: AS ADVISED BY RENAL TEAM
     Dates: start: 20190425
  9. CYANOCOBALAMIN. [Concomitant]
     Active Substance: CYANOCOBALAMIN
     Dosage: AS ADVISED BY RENAL TEAM
     Dates: start: 20190402
  10. METFORMIN [Concomitant]
     Active Substance: METFORMIN HYDROCHLORIDE
     Dates: start: 20190402, end: 20190912

REACTIONS (1)
  - Tubulointerstitial nephritis [Recovering/Resolving]

NARRATIVE: CASE EVENT DATE: 20190916
